FAERS Safety Report 20634898 (Version 1)
Quarter: 2022Q1

REPORT INFORMATION
  Report Type: Spontaneous
  Country: CA (occurrence: CA)
  Receive Date: 20220325
  Receipt Date: 20220325
  Transmission Date: 20220424
  Serious: Yes (Hospitalization, Other)
  Sender: FDA-Public Use
  Company Number: CA-002147023-PHHY2017CA179951

PATIENT
  Age: 66 Year
  Sex: Female

DRUGS (31)
  1. CLONAZEPAM [Suspect]
     Active Substance: CLONAZEPAM
     Indication: Product used for unknown indication
     Route: 065
  2. XOLAIR [Suspect]
     Active Substance: OMALIZUMAB
     Indication: Chronic spontaneous urticaria
     Route: 058
     Dates: start: 20170811
  3. XOLAIR [Suspect]
     Active Substance: OMALIZUMAB
     Indication: Chronic spontaneous urticaria
     Route: 058
     Dates: start: 20171111
  4. XOLAIR [Suspect]
     Active Substance: OMALIZUMAB
     Indication: Chronic spontaneous urticaria
     Route: 058
     Dates: start: 20171121
  5. XOLAIR [Suspect]
     Active Substance: OMALIZUMAB
     Indication: Chronic spontaneous urticaria
     Route: 058
     Dates: start: 20171122
  6. XOLAIR [Suspect]
     Active Substance: OMALIZUMAB
     Indication: Chronic spontaneous urticaria
     Route: 058
     Dates: start: 20180116
  7. XOLAIR [Suspect]
     Active Substance: OMALIZUMAB
     Indication: Chronic spontaneous urticaria
     Route: 058
     Dates: start: 20180508
  8. XOLAIR [Suspect]
     Active Substance: OMALIZUMAB
     Indication: Chronic spontaneous urticaria
     Route: 058
     Dates: start: 20181005
  9. XOLAIR [Suspect]
     Active Substance: OMALIZUMAB
     Indication: Chronic spontaneous urticaria
     Route: 058
     Dates: start: 20181130
  10. XOLAIR [Suspect]
     Active Substance: OMALIZUMAB
     Indication: Chronic spontaneous urticaria
     Route: 058
     Dates: start: 20190125
  11. XOLAIR [Suspect]
     Active Substance: OMALIZUMAB
     Indication: Chronic spontaneous urticaria
     Route: 058
     Dates: start: 20190222
  12. XOLAIR [Suspect]
     Active Substance: OMALIZUMAB
     Indication: Chronic spontaneous urticaria
     Route: 058
     Dates: start: 20190530
  13. XOLAIR [Suspect]
     Active Substance: OMALIZUMAB
     Indication: Chronic spontaneous urticaria
     Route: 065
     Dates: start: 20210513
  14. XOLAIR [Suspect]
     Active Substance: OMALIZUMAB
     Indication: Chronic spontaneous urticaria
     Route: 058
     Dates: start: 20211101
  15. XOLAIR [Suspect]
     Active Substance: OMALIZUMAB
     Indication: Chronic spontaneous urticaria
     Route: 058
     Dates: start: 20211228
  16. XOLAIR [Suspect]
     Active Substance: OMALIZUMAB
     Indication: Chronic spontaneous urticaria
     Route: 058
  17. XOLAIR [Suspect]
     Active Substance: OMALIZUMAB
     Indication: Chronic spontaneous urticaria
     Route: 058
  18. CEFADROXIL [Suspect]
     Active Substance: CEFADROXIL
     Indication: Product used for unknown indication
     Route: 065
  19. HYDROMORPHONE [Suspect]
     Active Substance: HYDROMORPHONE
     Indication: Product used for unknown indication
     Route: 065
  20. PAROXETINE [Suspect]
     Active Substance: PAROXETINE
     Indication: Product used for unknown indication
     Route: 065
  21. MORPHINE [Suspect]
     Active Substance: MORPHINE
     Indication: Product used for unknown indication
     Route: 065
  22. NIACIN [Suspect]
     Active Substance: NIACIN
     Indication: Product used for unknown indication
     Route: 065
  23. MECLIZINE [Suspect]
     Active Substance: MECLIZINE HYDROCHLORIDE
     Indication: Product used for unknown indication
     Route: 065
  24. ATARAX [Concomitant]
     Active Substance: HYDROXYZINE HYDROCHLORIDE
     Indication: Chronic spontaneous urticaria
     Route: 048
  25. REACTINE [Concomitant]
     Indication: Chronic spontaneous urticaria
     Route: 048
  26. FLUMETHASONE PIVALATE [Concomitant]
     Active Substance: FLUMETHASONE PIVALATE
     Indication: Chronic spontaneous urticaria
     Route: 061
  27. BILASTINE [Concomitant]
     Active Substance: BILASTINE
     Indication: Chronic spontaneous urticaria
     Route: 048
  28. PNEUMOVAX 23 [Concomitant]
     Active Substance: PNEUMOCOCCAL VACCINE, POLYVALENT 23
     Indication: Product used for unknown indication
     Dosage: SOLUTION
     Route: 030
  29. CAMPHOR [Concomitant]
     Active Substance: CAMPHOR
     Indication: Chronic spontaneous urticaria
     Dosage: UNK UNK, BID (IN GLAXAL BASE CREAM)
     Route: 061
  30. MENTHOL [Concomitant]
     Active Substance: MENTHOL
     Indication: Chronic spontaneous urticaria
     Dosage: UNK UNK, BID (IN GLAXAL BASE CREAM)
     Route: 061
  31. ASPIRIN [Concomitant]
     Active Substance: ASPIRIN
     Route: 065

REACTIONS (36)
  - Pneumonia [Recovered/Resolved]
  - Asthma [Unknown]
  - Skin plaque [Not Recovered/Not Resolved]
  - Stress [Unknown]
  - Influenza [Not Recovered/Not Resolved]
  - Nervousness [Unknown]
  - Oropharyngeal pain [Unknown]
  - Scratch [Not Recovered/Not Resolved]
  - Insomnia [Unknown]
  - Infection [Recovered/Resolved]
  - Erythema [Not Recovered/Not Resolved]
  - Illness [Unknown]
  - Dizziness postural [Unknown]
  - Pain [Unknown]
  - Back pain [Not Recovered/Not Resolved]
  - Vitamin B12 deficiency [Unknown]
  - Pigmentation disorder [Unknown]
  - Urticaria thermal [Unknown]
  - Headache [Unknown]
  - Nasopharyngitis [Unknown]
  - Chills [Unknown]
  - Urticaria [Not Recovered/Not Resolved]
  - Pruritus [Not Recovered/Not Resolved]
  - Sinusitis [Recovered/Resolved]
  - Nasal congestion [Unknown]
  - Secretion discharge [Unknown]
  - Fatigue [Unknown]
  - Dyspnoea [Unknown]
  - Migraine [Unknown]
  - Cough [Unknown]
  - Rhinorrhoea [Unknown]
  - Myalgia [Recovered/Resolved]
  - Drug hypersensitivity [Unknown]
  - Cough [Unknown]
  - Hallucination, visual [Unknown]
  - Fall [Unknown]

NARRATIVE: CASE EVENT DATE: 20171121
